FAERS Safety Report 18151941 (Version 1)
Quarter: 2020Q3

REPORT INFORMATION
  Report Type: Spontaneous
  Country: US (occurrence: US)
  Receive Date: 20200814
  Receipt Date: 20200814
  Transmission Date: 20201103
  Serious: Yes (Hospitalization, Disabling, Other)
  Sender: FDA-Public Use
  Company Number: US-PURDUE-USA-2020-0161165

PATIENT
  Age: 17 Year
  Sex: Male

DRUGS (2)
  1. ALPRAZOLAM. [Concomitant]
     Active Substance: ALPRAZOLAM
     Indication: PRODUCT USED FOR UNKNOWN INDICATION
     Dosage: 2 MG, UNK
     Route: 048
  2. OXYCODONE HCL CR TABLETS (SIMILAR TO NDA 22?272) [Suspect]
     Active Substance: OXYCODONE HYDROCHLORIDE
     Indication: SHOULDER OPERATION
     Dosage: 30 MG, UNK
     Route: 048

REACTIONS (5)
  - Psychotic disorder [Unknown]
  - Imprisonment [Unknown]
  - Drug dependence [Not Recovered/Not Resolved]
  - Arthroscopy [Unknown]
  - Drug abuse [Unknown]

NARRATIVE: CASE EVENT DATE: 20060627
